FAERS Safety Report 11752432 (Version 1)
Quarter: 2015Q4

REPORT INFORMATION
  Report Type: Spontaneous
  Country: AT (occurrence: AT)
  Receive Date: 20151118
  Receipt Date: 20151118
  Transmission Date: 20160304
  Serious: Yes (Disabling, Other)
  Sender: FDA-Public Use
  Company Number: AT-B.I. PHARMACEUTICALS,INC./RIDGEFIELD-2015-BI-63245BE

PATIENT
  Sex: Male

DRUGS (1)
  1. PRADAXA [Suspect]
     Active Substance: DABIGATRAN ETEXILATE MESYLATE
     Indication: ATRIAL FIBRILLATION
     Route: 065

REACTIONS (6)
  - Glaucoma [Unknown]
  - Carotid artery stenosis [Unknown]
  - Cerebrovascular accident [Unknown]
  - Dyspnoea [Unknown]
  - Bronchostenosis [Unknown]
  - Cerebrovascular accident [Recovered/Resolved with Sequelae]
